FAERS Safety Report 16940744 (Version 3)
Quarter: 2019Q4

REPORT INFORMATION
  Report Type: Spontaneous
  Country: JP (occurrence: JP)
  Receive Date: 20191021
  Receipt Date: 20191125
  Transmission Date: 20200122
  Serious: Yes (Death, Hospitalization, Other)
  Sender: FDA-Public Use
  Company Number: JP-PFIZER INC-2019449111

PATIENT
  Age: 6 Decade
  Sex: Male

DRUGS (1)
  1. LORBRENA [Suspect]
     Active Substance: LORLATINIB
     Dosage: UNK
     Dates: start: 201902

REACTIONS (2)
  - Cardio-respiratory arrest [Unknown]
  - Aortic dissection [Fatal]

NARRATIVE: CASE EVENT DATE: 20191001
